FAERS Safety Report 9181229 (Version 2)
Quarter: 2013Q1

REPORT INFORMATION
  Report Type: Spontaneous
  Country: US (occurrence: US)
  Receive Date: 20130322
  Receipt Date: 20130322
  Transmission Date: 20140127
  Serious: No
  Sender: FDA-Public Use
  Company Number: US-MYLANLABS-2012S1020729

PATIENT
  Age: 64 Year
  Sex: Female
  Weight: 66.23 kg

DRUGS (3)
  1. EMSAM [Suspect]
     Indication: DEPRESSION
     Dosage: Q24
     Route: 062
     Dates: start: 201207, end: 20120924
  2. EMSAM [Suspect]
     Indication: DEPRESSION
     Dosage: Q24
     Route: 062
     Dates: start: 20120925, end: 20121001
  3. ESTRACE [Concomitant]
     Route: 061

REACTIONS (6)
  - Application site burn [Recovering/Resolving]
  - Application site vesicles [Recovering/Resolving]
  - Application site erosion [Recovering/Resolving]
  - Application site rash [Recovered/Resolved]
  - Application site erythema [Recovering/Resolving]
  - Wrong technique in drug usage process [Recovered/Resolved]
